FAERS Safety Report 5331101-1 (Version None)
Quarter: 2007Q2

REPORT INFORMATION
  Report Type: 
  Country: None (occurrence: None)
  Receive Date: 20070522
  Receipt Date: 20070515
  Transmission Date: 20071010
  Serious: Yes (Other)
  Sender: FDA-Public Use
  Company Number: US-BRISTOL-MYERS SQUIBB COMPANY-13781125

PATIENT
  Age: 41 Year
  Sex: Male

DRUGS (10)
  1. TEQUIN [Suspect]
     Indication: RESPIRATORY TRACT INFECTION
     Route: 048
     Dates: start: 20060222
  2. UNITHROID [Concomitant]
  3. LIPITOR [Concomitant]
     Route: 048
  4. MICARDIS HCT [Concomitant]
  5. SYNTHROID [Concomitant]
     Route: 048
  6. DAYQUIL [Concomitant]
  7. TYLENOL [Concomitant]
     Indication: PYREXIA
  8. TYLENOL [Concomitant]
     Indication: PAIN
  9. BIAXIN [Concomitant]
     Route: 048
  10. TAMIFLU [Concomitant]
     Indication: RESPIRATORY TRACT INFECTION
     Route: 048

REACTIONS (2)
  - DIABETES MELLITUS [None]
  - HYPERGLYCAEMIA [None]
